FAERS Safety Report 9062908 (Version 1)
Quarter: 2013Q1

REPORT INFORMATION
  Report Type: Spontaneous
  Country: US (occurrence: US)
  Receive Date: 20130213
  Receipt Date: 20130213
  Transmission Date: 20140127
  Serious: No
  Sender: FDA-Public Use
  Company Number: US-B.I. PHARMACEUTICALS,INC./RIDGEFIELD-2013-BI-03551BP

PATIENT
  Age: 77 None
  Sex: Female

DRUGS (3)
  1. ZANTAC 150 (RANITIDINE HYDROCHLORIDE) [Suspect]
     Indication: DYSPEPSIA
     Dosage: 150 MG
     Route: 048
     Dates: start: 20130205, end: 20130205
  2. CENTRUM VITAMIN [Concomitant]
  3. LORAZAPAM [Concomitant]
     Indication: ANXIETY
     Route: 048
     Dates: start: 1990

REACTIONS (1)
  - Feeling hot [Not Recovered/Not Resolved]
